FAERS Safety Report 4348046-6 (Version None)
Quarter: 2004Q2

REPORT INFORMATION
  Report Type: 
  Country: None (occurrence: None)
  Receive Date: 20040422
  Receipt Date: 20040407
  Transmission Date: 20050107
  Serious: Yes (Hospitalization)
  Sender: FDA-Public Use
  Company Number: S03-GER-05238-01

PATIENT
  Age: 16 Year
  Sex: Female

DRUGS (1)
  1. CITALOPRAM HYDROBROMIDE [Suspect]
     Dosage: 14 TABLET ONCE PO
     Route: 048
     Dates: start: 20031111, end: 20031111

REACTIONS (8)
  - CIRCULATORY COLLAPSE [None]
  - NAUSEA [None]
  - OVERDOSE [None]
  - PSYCHOMOTOR SKILLS IMPAIRED [None]
  - SEDATION [None]
  - STRESS SYMPTOMS [None]
  - SUICIDE ATTEMPT [None]
  - TREMOR [None]
